FAERS Safety Report 13332420 (Version 1)
Quarter: 2017Q1

REPORT INFORMATION
  Report Type: Spontaneous
  Country: US (occurrence: US)
  Receive Date: 20170314
  Receipt Date: 20170314
  Transmission Date: 20170428
  Serious: No
  Sender: FDA-Public Use
  Company Number: US-BAYER-2017-048485

PATIENT
  Age: 79 Year
  Sex: Female
  Weight: 45.35 kg

DRUGS (2)
  1. MIRALAX [Suspect]
     Active Substance: POLYETHYLENE GLYCOL 3350
     Indication: GASTROINTESTINAL DISORDER
     Dosage: 1 DOSE (EVERY 3-4 DAYS DOSE)
     Route: 048
  2. MORPHINE [Concomitant]
     Active Substance: MORPHINE
     Dosage: UNK

REACTIONS (3)
  - Abnormal faeces [Not Recovered/Not Resolved]
  - Product use issue [Unknown]
  - Wrong technique in product usage process [Unknown]
